FAERS Safety Report 17581587 (Version 1)
Quarter: 2020Q1

REPORT INFORMATION
  Report Type: Spontaneous
  Country: PL (occurrence: PL)
  Receive Date: 20200325
  Receipt Date: 20200325
  Transmission Date: 20200409
  Serious: Yes (Death, Hospitalization)
  Sender: FDA-Public Use
  Company Number: PL-ACTELION-A-CH2020-203642

PATIENT
  Age: 68 Year
  Sex: Male

DRUGS (2)
  1. SILDENAFIL. [Suspect]
     Active Substance: SILDENAFIL
     Indication: PULMONARY ARTERIAL HYPERTENSION
     Route: 065
  2. VELETRI [Suspect]
     Active Substance: EPOPROSTENOL
     Indication: PULMONARY ARTERIAL HYPERTENSION
     Route: 042

REACTIONS (1)
  - Death [Fatal]
